FAERS Safety Report 6556614-6 (Version None)
Quarter: 2010Q1

REPORT INFORMATION
  Report Type: 
  Country: None (occurrence: None)
  Receive Date: 20100125
  Receipt Date: 20100111
  Transmission Date: 20100710
  Serious: Yes (Hospitalization)
  Sender: FDA-Public Use
  Company Number: DSM-2009-01779

PATIENT
  Age: 58 Year
  Sex: Male
  Weight: 74 kg

DRUGS (9)
  1. OLMESARTAN MEDOXOMIL AND HYDROCHLOROTHIZIDE [Suspect]
     Dosage: 40/10 MG (1 IN 1 D), ORAL
     Route: 048
     Dates: start: 20090929, end: 20091022
  2. GLICLAZIDE [Suspect]
  3. LANTUS [Concomitant]
  4. INDAPAMIDE [Concomitant]
  5. PERINDOPRIL ERBUMINE [Suspect]
  6. RILMENADINE [Suspect]
  7. METFORMIN HCL [Concomitant]
  8. HYDROCHLOROTHIAZIDE [Concomitant]
  9. IRBESARTAN [Concomitant]

REACTIONS (4)
  - BLOOD CREATINE INCREASED [None]
  - DRUG INEFFECTIVE [None]
  - GOUT [None]
  - PYREXIA [None]
